FAERS Safety Report 12176809 (Version 3)
Quarter: 2016Q2

REPORT INFORMATION
  Report Type: Spontaneous
  Country: US (occurrence: US)
  Receive Date: 20160315
  Receipt Date: 20160617
  Transmission Date: 20160815
  Serious: Yes (Other)
  Sender: FDA-Public Use
  Company Number: US-009507513-1603USA004130

PATIENT
  Sex: Male

DRUGS (3)
  1. XTANDI [Suspect]
     Active Substance: ENZALUTAMIDE
     Indication: PROSTATE CANCER
     Dosage: 160 MG, ONCE DAILY
     Route: 048
     Dates: start: 2015
  2. MIDAZOLAM [Suspect]
     Active Substance: MIDAZOLAM\MIDAZOLAM HYDROCHLORIDE
     Indication: SPINAL DISORDER
     Dosage: 1 MG/ML, ONCE IN EACH 3 MONTHS
     Route: 065
  3. CELESTONE SOLUSPAN [Suspect]
     Active Substance: BETAMETHASONE ACETATE\BETAMETHASONE SODIUM PHOSPHATE
     Indication: SPINAL DISORDER
     Dosage: UNK, ONCE IN EACH 3 MONTHS
     Route: 065

REACTIONS (8)
  - Musculoskeletal pain [Unknown]
  - Abnormal dreams [Not Recovered/Not Resolved]
  - Insomnia [Unknown]
  - Spinal disorder [Unknown]
  - Intervertebral disc degeneration [Unknown]
  - Nocturia [Unknown]
  - Neck pain [Unknown]
  - Headache [Recovering/Resolving]
